FAERS Safety Report 20548601 (Version 1)
Quarter: 2022Q1

REPORT INFORMATION
  Report Type: Spontaneous
  Country: US (occurrence: US)
  Receive Date: 20220303
  Receipt Date: 20220303
  Transmission Date: 20220423
  Serious: No
  Sender: FDA-Public Use
  Company Number: US-ALLERGAN-2117811US

PATIENT
  Age: 85 Year
  Sex: Female
  Weight: 67.574 kg

DRUGS (1)
  1. RESTASIS [Suspect]
     Active Substance: CYCLOSPORINE
     Indication: Dry eye
     Dosage: ONCE IN THE MORNING AND ONCE AT NIGHT
     Route: 047
     Dates: start: 202104

REACTIONS (3)
  - Pain in extremity [Recovered/Resolved]
  - Product container issue [Unknown]
  - Product delivery mechanism issue [Unknown]

NARRATIVE: CASE EVENT DATE: 20210401
